FAERS Safety Report 15132187 (Version 1)
Quarter: 2018Q3

REPORT INFORMATION
  Report Type: Report from Study
  Country: RU (occurrence: RU)
  Receive Date: 20180711
  Receipt Date: 20180711
  Transmission Date: 20181010
  Serious: Yes (Other)
  Sender: FDA-Public Use
  Company Number: PHHY2018RU037590

PATIENT
  Age: 40 Year

DRUGS (4)
  1. TRAMETINIB [Suspect]
     Active Substance: TRAMETINIB
     Indication: MALIGNANT MELANOMA
     Dosage: 2 MG, QD
     Route: 065
     Dates: start: 201712, end: 20180410
  2. DABRAFENIB [Suspect]
     Active Substance: DABRAFENIB
     Indication: MALIGNANT MELANOMA
     Dosage: 150 MG, BID
     Route: 065
     Dates: start: 201712, end: 20180410
  3. TRAMETINIB [Suspect]
     Active Substance: TRAMETINIB
     Dosage: 2 MG, QD
     Route: 065
     Dates: start: 20180521
  4. DABRAFENIB [Suspect]
     Active Substance: DABRAFENIB
     Dosage: 75 MG, BID
     Route: 065
     Dates: start: 20180521

REACTIONS (12)
  - Aspartate aminotransferase increased [Unknown]
  - Monocyte count decreased [Unknown]
  - Alanine aminotransferase increased [Unknown]
  - Febrile neutropenia [Unknown]
  - Aphthous ulcer [Unknown]
  - Haematotoxicity [Unknown]
  - White blood cell count decreased [Unknown]
  - Thrombocytopenia [Unknown]
  - Blood cholesterol decreased [Unknown]
  - Leukopenia [Unknown]
  - Protein total decreased [Unknown]
  - Hyperthermia [Unknown]

NARRATIVE: CASE EVENT DATE: 20180101
